FAERS Safety Report 15946253 (Version 3)
Quarter: 2019Q2

REPORT INFORMATION
  Report Type: Spontaneous
  Country: US (occurrence: US)
  Receive Date: 20190211
  Receipt Date: 20190502
  Transmission Date: 20190711
  Serious: Yes (Other)
  Sender: FDA-Public Use
  Company Number: US-ASTRAZENECA-2018SF21365

PATIENT
  Age: 803 Month
  Sex: Female

DRUGS (21)
  1. ADVAIR DISKUS [Concomitant]
     Active Substance: FLUTICASONE PROPIONATE\SALMETEROL XINAFOATE
     Dosage: 250-50 MCG/DOSE TAKE AS NEEDED
  2. GABAPENTIN. [Concomitant]
     Active Substance: GABAPENTIN
  3. CARVEDIOL [Concomitant]
     Active Substance: CARVEDILOL
  4. PRILOSEC OTC [Suspect]
     Active Substance: OMEPRAZOLE MAGNESIUM
     Route: 048
  5. LOSARTAN. [Concomitant]
     Active Substance: LOSARTAN
  6. TIZANIDINE. [Concomitant]
     Active Substance: TIZANIDINE
  7. PRILOSEC [Suspect]
     Active Substance: OMEPRAZOLE MAGNESIUM
     Route: 048
  8. ALLOPURINOL. [Concomitant]
     Active Substance: ALLOPURINOL
  9. BAYER ASPIRIN [Concomitant]
     Active Substance: ASPIRIN
     Dosage: 81.0MG UNKNOWN
  10. LEXAPRO [Concomitant]
     Active Substance: ESCITALOPRAM OXALATE
     Dosage: 20.0MG UNKNOWN
  11. POTASSIUM CHLORIDE. [Concomitant]
     Active Substance: POTASSIUM CHLORIDE
  12. NEXIUM [Suspect]
     Active Substance: ESOMEPRAZOLE MAGNESIUM
     Route: 048
     Dates: start: 20020101, end: 20160101
  13. NEXIUM 24HR [Suspect]
     Active Substance: ESOMEPRAZOLE MAGNESIUM
     Route: 048
  14. HYDROCODONE [Concomitant]
     Active Substance: HYDROCODONE
     Dosage: 10-325MG TAKE EVERY 4-6HOURS
  15. LASIX [Concomitant]
     Active Substance: FUROSEMIDE
  16. PREVACID [Suspect]
     Active Substance: LANSOPRAZOLE
     Route: 065
  17. PREVACID 24 HR [Suspect]
     Active Substance: LANSOPRAZOLE
     Route: 065
  18. ATORVASTATIN [Concomitant]
     Active Substance: ATORVASTATIN
  19. LEVOTHYROXINE. [Concomitant]
     Active Substance: LEVOTHYROXINE
  20. METOLAZONE. [Concomitant]
     Active Substance: METOLAZONE
  21. NEXIUM [Suspect]
     Active Substance: ESOMEPRAZOLE MAGNESIUM
     Route: 048

REACTIONS (4)
  - Nephrogenic anaemia [Unknown]
  - Chronic kidney disease [Not Recovered/Not Resolved]
  - Acute kidney injury [Not Recovered/Not Resolved]
  - Renal injury [Unknown]

NARRATIVE: CASE EVENT DATE: 201008
